FAERS Safety Report 10064972 (Version 2)
Quarter: 2014Q2

REPORT INFORMATION
  Report Type: Spontaneous
  Country: BR (occurrence: BR)
  Receive Date: 20140408
  Receipt Date: 20140414
  Transmission Date: 20141212
  Serious: Yes (Other)
  Sender: FDA-Public Use
  Company Number: BR-PFIZER INC-2014092786

PATIENT
  Age: 72 Year
  Sex: Male

DRUGS (1)
  1. XALATAN [Suspect]
     Dosage: 1 GTT, 2X/DAY
     Dates: start: 20120710

REACTIONS (2)
  - Eye disorder [Unknown]
  - Inappropriate schedule of drug administration [Recovered/Resolved]
